FAERS Safety Report 4521379-6 (Version None)
Quarter: 2004Q4

REPORT INFORMATION
  Report Type: 
  Country: None (occurrence: None)
  Receive Date: 20041208
  Receipt Date: 20040929
  Transmission Date: 20050328
  Serious: Yes (Hospitalization)
  Sender: FDA-Public Use
  Company Number: FR-MERCK-0409FRA00105

PATIENT
  Age: 63 Year
  Sex: Male

DRUGS (3)
  1. VIOXX [Suspect]
     Indication: BACK PAIN
     Route: 048
     Dates: end: 20040404
  2. OMEPRAZOLE [Concomitant]
     Route: 048
  3. PROPRANOLOL HYDROCHLORIDE [Concomitant]
     Indication: PROPHYLAXIS
     Route: 048

REACTIONS (3)
  - GASTRIC VARICES [None]
  - HAEMATEMESIS [None]
  - VARICES OESOPHAGEAL [None]
